FAERS Safety Report 7320245-0 (Version None)
Quarter: 2011Q1

REPORT INFORMATION
  Report Type: 
  Country: None (occurrence: None)
  Receive Date: 20110228
  Receipt Date: 20110221
  Transmission Date: 20110831
  Serious: Yes (Hospitalization)
  Sender: FDA-Public Use
  Company Number: US-B.I. PHARMACEUTICALS,INC./RIDGEFIELD-2011-BP-01736BP

PATIENT
  Age: 91 Year
  Sex: Female

DRUGS (2)
  1. PRADAXA [Suspect]
     Indication: ATRIAL FIBRILLATION
     Dosage: 150 MG
     Dates: start: 20110110, end: 20110123
  2. ASPIRIN [Concomitant]
     Dates: end: 20110123

REACTIONS (1)
  - GASTROINTESTINAL HAEMORRHAGE [None]
